FAERS Safety Report 7012116-4 (Version None)
Quarter: 2010Q3

REPORT INFORMATION
  Report Type: 
  Country: None (occurrence: None)
  Receive Date: 20100924
  Receipt Date: 20100913
  Transmission Date: 20110219
  Serious: Yes (Other)
  Sender: FDA-Public Use
  Company Number: CA-JNJFOC-20100904904

PATIENT
  Sex: Female

DRUGS (1)
  1. REMICADE [Suspect]
     Indication: RHEUMATOID ARTHRITIS
     Route: 042

REACTIONS (7)
  - ANAL HAEMORRHAGE [None]
  - ARTHRALGIA [None]
  - DIZZINESS [None]
  - DRUG INEFFECTIVE [None]
  - INCORRECT STORAGE OF DRUG [None]
  - NAUSEA [None]
  - RED BLOOD CELL SEDIMENTATION RATE INCREASED [None]
